FAERS Safety Report 7974501-3 (Version None)
Quarter: 2011Q4

REPORT INFORMATION
  Report Type: 
  Country: None (occurrence: None)
  Receive Date: 20111213
  Receipt Date: 20111205
  Transmission Date: 20120403
  Serious: Yes (Life-Threatening)
  Sender: FDA-Public Use
  Company Number: JP-ASTRAZENECA-2011SE72026

PATIENT
  Age: 72 Year
  Sex: Male

DRUGS (8)
  1. TEGRETOL [Concomitant]
     Route: 065
  2. MAGMITT [Concomitant]
     Route: 065
  3. CRESTOR [Suspect]
     Indication: HYPERCHOLESTEROLAEMIA
     Route: 048
     Dates: start: 20111104, end: 20111112
  4. FAMOTIDINE [Concomitant]
     Route: 048
  5. OLMESARTAN MEDOXOMIL [Concomitant]
     Route: 048
  6. AMLODIPINE [Concomitant]
     Route: 048
  7. SPIRIVA [Concomitant]
     Route: 055
  8. UNKNOWNDRUG [Concomitant]
     Route: 048

REACTIONS (2)
  - DRUG ERUPTION [None]
  - STEVENS-JOHNSON SYNDROME [None]
